FAERS Safety Report 9785673 (Version 1)
Quarter: 2013Q4

REPORT INFORMATION
  Report Type: Spontaneous
  Country: US (occurrence: None)
  Receive Date: 20131226
  Receipt Date: 20131226
  Transmission Date: 20140711
  Serious: Yes (Disabling)
  Sender: FDA-Public Use
  Company Number: None

PATIENT
  Age: 65 Year
  Sex: Female
  Weight: 77.11 kg

DRUGS (10)
  1. SUBOXONE [Suspect]
     Indication: BACK PAIN
     Dosage: 2MG - 8MG  2 - 3X PER DAY  SUBLINGUALLY
     Route: 060
     Dates: start: 201310
  2. SUBOXONE [Suspect]
     Indication: INTERVERTEBRAL DISC DEGENERATION
     Dosage: 2MG - 8MG  2 - 3X PER DAY  SUBLINGUALLY
     Route: 060
     Dates: start: 201310
  3. BACLOFEN [Concomitant]
  4. SASALATE [Concomitant]
  5. GABAPENTIN [Concomitant]
  6. AMLODIPINE [Concomitant]
  7. PRILOSEC [Concomitant]
  8. TYLENOL [Concomitant]
  9. MULTIVITAMIN [Concomitant]
  10. VIT B-100 [Concomitant]

REACTIONS (4)
  - Oedema peripheral [None]
  - Back pain [None]
  - Local swelling [None]
  - Pain in extremity [None]
